FAERS Safety Report 12431740 (Version 3)
Quarter: 2016Q3

REPORT INFORMATION
  Report Type: Report from Study
  Country: FI (occurrence: FI)
  Receive Date: 20160603
  Receipt Date: 20160713
  Transmission Date: 20161109
  Serious: Yes (Hospitalization)
  Sender: FDA-Public Use
  Company Number: FI-ROCHE-1765440

PATIENT
  Age: 49 Year
  Sex: Female
  Weight: 55 kg

DRUGS (7)
  1. GRANISETRON B.BRAUN [Concomitant]
     Route: 065
     Dates: start: 20160503
  2. METOCLOPRAMIDE. [Concomitant]
     Active Substance: METOCLOPRAMIDE
     Route: 065
     Dates: start: 20160503
  3. CISPLATIN. [Suspect]
     Active Substance: CISPLATIN
     Indication: ADENOCARCINOMA GASTRIC
     Dosage: DAY 1?LAST DOSE PRIOR TO AE: 03/MAY/2016
     Route: 042
     Dates: start: 20160503
  4. CISPLATIN. [Suspect]
     Active Substance: CISPLATIN
     Route: 042
     Dates: start: 20160525
  5. CAPECITABINE. [Suspect]
     Active Substance: CAPECITABINE
     Route: 065
     Dates: start: 20160525
  6. APREPITANT. [Concomitant]
     Active Substance: APREPITANT
     Route: 065
     Dates: start: 20160503
  7. CAPECITABINE. [Suspect]
     Active Substance: CAPECITABINE
     Indication: ADENOCARCINOMA GASTRIC
     Dosage: LAST DOSE PRIOR TO AE:09/MAY/2016
     Route: 065
     Dates: start: 20160503, end: 20160509

REACTIONS (1)
  - General physical health deterioration [Recovering/Resolving]

NARRATIVE: CASE EVENT DATE: 20160509
